FAERS Safety Report 19478222 (Version 3)
Quarter: 2021Q4

REPORT INFORMATION
  Report Type: Spontaneous
  Country: US (occurrence: US)
  Receive Date: 20210630
  Receipt Date: 20211026
  Transmission Date: 20220303
  Serious: Yes (Other)
  Sender: FDA-Public Use
  Company Number: US-PFIZER INC-2021721604

PATIENT
  Age: 68 Year
  Sex: Male
  Weight: 73.7 kg

DRUGS (26)
  1. MYCOBUTIN [Interacting]
     Active Substance: RIFABUTIN
     Indication: Antibiotic therapy
     Dosage: 500MG CAPSULE MORNING AND NIGHT
  2. MYCOBUTIN [Interacting]
     Active Substance: RIFABUTIN
     Indication: Mycobacterial infection
     Dosage: 150 MG, 2X/DAY
  3. TACROLIMUS [Interacting]
     Active Substance: TACROLIMUS
     Dosage: 4MG IN THE MORNING AND 3.5MG AT NIGHT
  4. MYCOPHENOLATE MOFETIL [Concomitant]
     Active Substance: MYCOPHENOLATE MOFETIL
     Indication: Prophylaxis against transplant rejection
     Dosage: 500 MG, 2X/DAY
     Route: 048
  5. PREDNISONE [Concomitant]
     Active Substance: PREDNISONE
     Indication: Prophylaxis against transplant rejection
     Dosage: 10 MG, DAILY
     Route: 048
  6. PRAVASTATIN [Concomitant]
     Active Substance: PRAVASTATIN
     Indication: Blood cholesterol
     Dosage: 40 MG, DAILY
     Route: 048
  7. ALENDRONATE [Concomitant]
     Active Substance: ALENDRONATE SODIUM
     Indication: Osteoporosis
     Dosage: 70MG/75ML ONCE EVERY OTHER WEEK
     Route: 048
  8. ALENDRONATE [Concomitant]
     Active Substance: ALENDRONATE SODIUM
     Indication: Prophylaxis
  9. GABAPENTIN [Concomitant]
     Active Substance: GABAPENTIN
     Dosage: 300 MG, 4X/DAY
  10. BACTRIM DS [Concomitant]
     Active Substance: SULFAMETHOXAZOLE\TRIMETHOPRIM
     Dosage: 1 TABLET THREE TIMES A DAY
     Route: 048
  11. VALACYCLOVIR HYDROCHLORIDE [Concomitant]
     Active Substance: VALACYCLOVIR HYDROCHLORIDE
     Indication: Viral infection
     Dosage: 500 MG, DAILY
     Route: 048
  12. VALACYCLOVIR HYDROCHLORIDE [Concomitant]
     Active Substance: VALACYCLOVIR HYDROCHLORIDE
     Indication: Infection prophylaxis
  13. APIXABAN [Concomitant]
     Active Substance: APIXABAN
     Indication: Cerebrovascular accident prophylaxis
     Dosage: 2.5 MG, 2X/DAY
     Route: 048
  14. LASIX [Concomitant]
     Active Substance: FUROSEMIDE
     Indication: Pulmonary oedema
     Dosage: 40MG ONCE DAILY AND PRN IF NEEDS ADDITIONAL
  15. LASIX [Concomitant]
     Active Substance: FUROSEMIDE
     Indication: Fluid retention
  16. POTASSIUM CHLORIDE [Concomitant]
     Active Substance: POTASSIUM CHLORIDE
     Indication: Electrolyte substitution therapy
     Dosage: 10 MG, DAILY
     Route: 048
  17. ETHAMBUTOL [Concomitant]
     Active Substance: ETHAMBUTOL HYDROCHLORIDE
     Indication: Bronchial disorder
     Dosage: 1200MG EVERY THREE DAYS
     Route: 048
  18. TRESIBA [Concomitant]
     Active Substance: INSULIN DEGLUDEC
     Dosage: 4 TIMES A DAY
  19. LEVOTHYROXINE SODIUM [Concomitant]
     Active Substance: LEVOTHYROXINE SODIUM
     Indication: Thyroid disorder
     Dosage: 100 UG, DAILY
     Route: 048
  20. VITAMIN D NOS [Concomitant]
     Active Substance: VITAMIN D NOS
     Dosage: 1000 IU, 2X/DAY
  21. NOVOLOG [Concomitant]
     Active Substance: INSULIN ASPART
     Indication: Steroid diabetes
     Dosage: 4ML ON SLIDING SCALE, INJECTION IN SUB Q PEN
     Route: 058
  22. DUONEB [Concomitant]
     Active Substance: ALBUTEROL SULFATE\IPRATROPIUM BROMIDE
     Dosage: 0.5MG-2.5MG/3ML TWICE A DAY VIA NEBULATION
     Route: 055
  23. SODIUM CHLORIDE [Concomitant]
     Active Substance: SODIUM CHLORIDE
     Dosage: 4 ML, 2X/DAY
     Route: 055
  24. PROTONIX [Concomitant]
     Active Substance: PANTOPRAZOLE SODIUM
     Dosage: 40 MG, 1X/DAY
     Route: 048
  25. LANTUS [Concomitant]
     Active Substance: INSULIN GLARGINE
     Indication: Insulin therapy
     Dosage: TAKES AS NEEDED, PRESCRIBED AS 20 UNITS IN MORNING AND 35 UNITS AT NIGHT BASED ON BLOOD SUGAR.
  26. AMIODARONE HYDROCHLORIDE [Concomitant]
     Active Substance: AMIODARONE HYDROCHLORIDE
     Indication: Arrhythmia
     Dosage: 2 DF, DAILY AT BEDTIME
     Route: 048

REACTIONS (2)
  - Drug interaction [Unknown]
  - Tremor [Unknown]
